FAERS Safety Report 4357242-3 (Version None)
Quarter: 2004Q2

REPORT INFORMATION
  Report Type: 
  Country: None (occurrence: None)
  Receive Date: 20040507
  Receipt Date: 20040419
  Transmission Date: 20050107
  Serious: Yes (Other)
  Sender: FDA-Public Use
  Company Number: US_0404102392

PATIENT
  Age: 50 Year
  Sex: Female
  Weight: 106 kg

DRUGS (5)
  1. HUMATROPE [Suspect]
     Indication: GROWTH HORMONE DEFICIENCY
     Dosage: 0.1 MG DAY
     Dates: start: 20030508, end: 20040410
  2. ACTIVELLE [Concomitant]
  3. PREVACID [Concomitant]
  4. VIOXX [Concomitant]
  5. ASPIRIN [Concomitant]

REACTIONS (1)
  - SUPRAVENTRICULAR TACHYCARDIA [None]
